FAERS Safety Report 7005078-7 (Version None)
Quarter: 2010Q3

REPORT INFORMATION
  Report Type: 
  Country: None (occurrence: None)
  Receive Date: 20100921
  Receipt Date: 20100910
  Transmission Date: 20110219
  Serious: Yes (Hospitalization)
  Sender: FDA-Public Use
  Company Number: PHHY2010FR60632

PATIENT
  Sex: Male

DRUGS (1)
  1. FORADIL [Suspect]
     Indication: ASTHMA
     Route: 048

REACTIONS (6)
  - CHILLS [None]
  - DRUG TOXICITY [None]
  - HYPOKALAEMIA [None]
  - INCORRECT ROUTE OF DRUG ADMINISTRATION [None]
  - PALPITATIONS [None]
  - TACHYCARDIA [None]
